FAERS Safety Report 8934129 (Version 3)
Quarter: 2013Q1

REPORT INFORMATION
  Report Type: Spontaneous
  Country: TW (occurrence: TW)
  Receive Date: 20121129
  Receipt Date: 20130312
  Transmission Date: 20140127
  Serious: Yes (Other)
  Sender: FDA-Public Use
  Company Number: TW-ABBOTT-12P-153-1013982-00

PATIENT
  Age: 62 Year
  Sex: Male
  Weight: 83 kg

DRUGS (10)
  1. HUMIRA [Suspect]
     Indication: RHEUMATOID ARTHRITIS
     Route: 058
     Dates: start: 20120710, end: 20121030
  2. HUMIRA [Suspect]
     Dosage: 1 SYRINGE ST
     Dates: start: 20130205
  3. ROBATROL [Concomitant]
     Indication: PRODUCT USED FOR UNKNOWN INDICATION
     Dates: start: 20130226
  4. CA. CITRATE [Concomitant]
     Indication: PRODUCT USED FOR UNKNOWN INDICATION
     Dates: start: 20130205
  5. PLAQUENIL [Concomitant]
     Indication: PRODUCT USED FOR UNKNOWN INDICATION
     Dates: start: 20130205
  6. MTX [Concomitant]
     Indication: RHEUMATOID ARTHRITIS
     Dates: start: 20130205
  7. SILYMARIN [Concomitant]
     Indication: PRODUCT USED FOR UNKNOWN INDICATION
     Dates: start: 20130226
  8. PEG-INTRON [Concomitant]
     Indication: PRODUCT USED FOR UNKNOWN INDICATION
     Dosage: 1 VIAL ST
     Dates: start: 20130226
  9. RECORMON [Concomitant]
     Indication: PRODUCT USED FOR UNKNOWN INDICATION
     Dosage: 10000IU/0.6 DAILY, 1 SYRINGE ST
     Dates: start: 20130226
  10. FERALL [Concomitant]
     Indication: PRODUCT USED FOR UNKNOWN INDICATION
     Dates: start: 20130226

REACTIONS (2)
  - Liver function test abnormal [Unknown]
  - Hepatitis C [Unknown]
